FAERS Safety Report 7748816-8 (Version None)
Quarter: 2011Q3

REPORT INFORMATION
  Report Type: 
  Country: None (occurrence: None)
  Receive Date: 20110914
  Receipt Date: 20100408
  Transmission Date: 20111222
  Serious: No
  Sender: FDA-Public Use
  Company Number: US-BAYER-201019973NA

PATIENT
  Sex: Female

DRUGS (1)
  1. MIRENA [Suspect]
     Indication: CONTRACEPTION
     Dosage: 20 MCG/24HR, UNK
     Dates: start: 20100401

REACTIONS (3)
  - POST PROCEDURAL HAEMORRHAGE [None]
  - MEDICAL DEVICE COMPLICATION [None]
  - GENITAL HAEMORRHAGE [None]
